FAERS Safety Report 8199149-X (Version None)
Quarter: 2012Q1

REPORT INFORMATION
  Report Type: 
  Country: None (occurrence: None)
  Receive Date: 20120309
  Receipt Date: 20120307
  Transmission Date: 20120608
  Serious: No
  Sender: FDA-Public Use
  Company Number: US-PFIZER INC-2012061633

PATIENT
  Sex: Female
  Weight: 81.63 kg

DRUGS (1)
  1. LIPITOR [Suspect]
     Indication: BLOOD CHOLESTEROL INCREASED
     Dosage: UNK, ONCE A DAY
     Route: 048
     Dates: start: 20080101, end: 20090101

REACTIONS (2)
  - WEIGHT INCREASED [None]
  - PAIN [None]
